FAERS Safety Report 25816823 (Version 1)
Quarter: 2025Q3

REPORT INFORMATION
  Report Type: Report from Study
  Country: US (occurrence: US)
  Receive Date: 20250918
  Receipt Date: 20250918
  Transmission Date: 20251020
  Serious: No
  Sender: ACADIA PHARMACEUTICALS
  Company Number: US-ACADIA PHARMACEUTICALS INC.-ACA-2025-PIM-010231

PATIENT
  Age: 70 Year
  Sex: Female

DRUGS (9)
  1. NUPLAZID [Suspect]
     Active Substance: PIMAVANSERIN TARTRATE
     Indication: Parkinson^s disease
     Dosage: 34 MILLIGRAM, QD
     Route: 048
     Dates: start: 20231108
  2. RYTARY [Concomitant]
     Active Substance: CARBIDOPA\LEVODOPA
  3. PREDNISONE [Concomitant]
     Active Substance: PREDNISONE
  4. MONTELUKAST [Concomitant]
     Active Substance: MONTELUKAST
  5. PANTOPRAZOLE [Concomitant]
     Active Substance: PANTOPRAZOLE
  6. BUDESONIDE [Concomitant]
     Active Substance: BUDESONIDE
  7. FERROUS SULFATE [Concomitant]
     Active Substance: FERROUS SULFATE
  8. GABAPENTIN [Concomitant]
     Active Substance: GABAPENTIN
  9. VALSARTAN [Concomitant]
     Active Substance: VALSARTAN

REACTIONS (1)
  - Contusion [Not Recovered/Not Resolved]

NARRATIVE: CASE EVENT DATE: 20250701
